FAERS Safety Report 9777002 (Version 1)
Quarter: 2013Q4

REPORT INFORMATION
  Report Type: Report from Study
  Country: TR (occurrence: TR)
  Receive Date: 20131221
  Receipt Date: 20131221
  Transmission Date: 20140711
  Serious: Yes (Other)
  Sender: FDA-Public Use
  Company Number: TR-ROCHE-1322242

PATIENT
  Age: 43 Year
  Sex: Female

DRUGS (1)
  1. INTERFERON ALFA-2A [Suspect]
     Indication: HEPATITIS C
     Dosage: 3 MILLION IU
     Route: 065
     Dates: start: 1994

REACTIONS (1)
  - Autoimmune hepatitis [Recovered/Resolved]
